FAERS Safety Report 7655047-9 (Version None)
Quarter: 2011Q3

REPORT INFORMATION
  Report Type: 
  Country: None (occurrence: None)
  Receive Date: 20110801
  Receipt Date: 20110714
  Transmission Date: 20111222
  Serious: Yes (Hospitalization, Other)
  Sender: FDA-Public Use
  Company Number: 2011MA008889

PATIENT
  Age: 25 Year
  Sex: Male

DRUGS (1)
  1. PHENYTOIN [Suspect]
     Indication: CONVULSION PROPHYLAXIS

REACTIONS (10)
  - FATIGUE [None]
  - PALLOR [None]
  - HEART RATE INCREASED [None]
  - DYSPNOEA [None]
  - ASTHENIA [None]
  - APLASIA PURE RED CELL [None]
  - CONTUSION [None]
  - CARDIAC MURMUR [None]
  - RESPIRATORY RATE INCREASED [None]
  - RED BLOOD CELL ABNORMALITY [None]
